FAERS Safety Report 6453165-4 (Version None)
Quarter: 2009Q4

REPORT INFORMATION
  Report Type: 
  Country: None (occurrence: None)
  Receive Date: 20091124
  Receipt Date: 20091117
  Transmission Date: 20100525
  Serious: Yes (Death, Life-Threatening, Hospitalization)
  Sender: FDA-Public Use
  Company Number: FR-BAYER-200939458GPV

PATIENT
  Age: 67 Year
  Sex: Female

DRUGS (5)
  1. FLUDARA [Suspect]
     Indication: DRUG USE FOR UNKNOWN INDICATION
     Dosage: CYCLE 1
     Route: 048
     Dates: start: 20081101, end: 20081101
  2. FLUDARA [Suspect]
     Dosage: CYCLE 2
     Route: 048
     Dates: start: 20081205, end: 20081209
  3. PROZAC [Concomitant]
  4. SPASFON-LYOC [Concomitant]
  5. VOGALENE [Concomitant]

REACTIONS (8)
  - BONE MARROW FAILURE [None]
  - CIRCULATORY COLLAPSE [None]
  - DIARRHOEA [None]
  - DYSURIA [None]
  - PANCYTOPENIA [None]
  - SEPTIC SHOCK [None]
  - URINARY TRACT INFECTION [None]
  - VOMITING [None]
